FAERS Safety Report 8369761-3 (Version None)
Quarter: 2012Q2

REPORT INFORMATION
  Report Type: 
  Country: None (occurrence: None)
  Receive Date: 20120518
  Receipt Date: 20120514
  Transmission Date: 20120825
  Serious: Yes (Hospitalization, Other)
  Sender: FDA-Public Use
  Company Number: BR-PFIZER INC-2012079516

PATIENT
  Age: 49 Year
  Sex: Female

DRUGS (2)
  1. CLONAZEPAM [Concomitant]
     Dosage: UNK
  2. LYRICA [Suspect]
     Dosage: 75 MG, 2X/DAY
     Route: 048
     Dates: start: 20080327

REACTIONS (3)
  - ARTHRODESIS [None]
  - SPINAL LAMINECTOMY [None]
  - SPINAL DISORDER [None]
